FAERS Safety Report 6179881-X (Version None)
Quarter: 2009Q2

REPORT INFORMATION
  Report Type: 
  Country: None (occurrence: None)
  Receive Date: 20090505
  Receipt Date: 20090317
  Transmission Date: 20091009
  Serious: Yes (Death)
  Sender: FDA-Public Use
  Company Number: ID-ROCHE-618220

PATIENT
  Age: 9 Year
  Sex: Female

DRUGS (1)
  1. OSELTAMIVIR [Suspect]
     Indication: AVIAN INFLUENZA
     Route: 065
     Dates: start: 20060814, end: 20060815

REACTIONS (2)
  - AVIAN INFLUENZA [None]
  - PNEUMONIA [None]
